FAERS Safety Report 10021404 (Version 1)
Quarter: 2014Q1

REPORT INFORMATION
  Report Type: Spontaneous
  Country: US (occurrence: None)
  Receive Date: 20140318
  Receipt Date: 20140318
  Transmission Date: 20141002
  Serious: Yes (Life-Threatening, Hospitalization)
  Sender: FDA-Public Use
  Company Number: None

PATIENT
  Age: 39 Year
  Sex: Female
  Weight: 74.84 kg

DRUGS (1)
  1. GENERESS FE [Suspect]
     Indication: CONTRACEPTION
     Dosage: 28 DAY
     Route: 048

REACTIONS (2)
  - Fibroadenoma of breast [None]
  - Breast cancer [None]
